FAERS Safety Report 5640567-9 (Version None)
Quarter: 2008Q1

REPORT INFORMATION
  Report Type: 
  Country: None (occurrence: None)
  Receive Date: 20080227
  Receipt Date: 20080220
  Transmission Date: 20080703
  Serious: Yes (Other)
  Sender: FDA-Public Use
  Company Number: PHFR2008GB00949

PATIENT
  Age: 62 Year
  Sex: Male
  Weight: 131 kg

DRUGS (5)
  1. CO-CODAMOL [Concomitant]
     Indication: PAIN
     Route: 048
     Dates: start: 20070101
  2. IBUPROFEN [Concomitant]
     Indication: PAIN
     Route: 048
     Dates: start: 20070101
  3. INSULIN [Concomitant]
     Indication: DIABETES MELLITUS
     Route: 058
  4. METFORMIN HCL [Concomitant]
     Indication: DIABETES MELLITUS
     Route: 048
  5. ZOMETA [Suspect]
     Indication: PROSTATE CANCER
     Dosage: 4 MG
     Route: 042
     Dates: start: 20080109

REACTIONS (1)
  - HYPOGLYCAEMIA [None]
